FAERS Safety Report 5208365-8 (Version None)
Quarter: 2006Q4

REPORT INFORMATION
  Report Type: 
  Country: None (occurrence: None)
  Receive Date: 20061026
  Receipt Date: 20060731
  Transmission Date: 20070319
  Serious: No
  Sender: FDA-Public Use
  Company Number: 2006094570

PATIENT
  Age: 52 Year
  Sex: Female
  Weight: 89.8122 kg

DRUGS (5)
  1. LYRICA [Suspect]
     Indication: NEUROPATHY PERIPHERAL
     Dosage: 100 MG (50 MG,2 IN 1 D),ORAL
     Route: 048
     Dates: start: 20060401, end: 20060701
  2. LIPITOR [Concomitant]
  3. ZESTRIL [Concomitant]
  4. LANTUS [Concomitant]
  5. INSULIN GLULISINE (INSULIN GLULISINE) [Concomitant]

REACTIONS (4)
  - BALANCE DISORDER [None]
  - NEUROPATHY [None]
  - OEDEMA PERIPHERAL [None]
  - PAIN IN EXTREMITY [None]
